FAERS Safety Report 4755021-6 (Version None)
Quarter: 2005Q3

REPORT INFORMATION
  Report Type: 
  Country: None (occurrence: None)
  Receive Date: 20050829
  Receipt Date: 20050620
  Transmission Date: 20060218
  Serious: Yes (Hospitalization)
  Sender: FDA-Public Use
  Company Number: DE-BRISTOL-MYERS SQUIBB COMPANY-13009154

PATIENT
  Age: 63 Year
  Sex: Female

DRUGS (18)
  1. CISPLATIN [Suspect]
     Indication: SMALL CELL LUNG CANCER STAGE UNSPECIFIED
     Route: 051
     Dates: start: 20050404, end: 20050404
  2. TOPOTECAN HCL [Suspect]
     Indication: SMALL CELL LUNG CANCER STAGE UNSPECIFIED
     Route: 042
     Dates: start: 20050330, end: 20050404
  3. LORAZEPAM [Concomitant]
     Dates: start: 20050210
  4. ATOSIL [Concomitant]
     Dates: start: 20050329
  5. METOCLOPRAMIDE [Concomitant]
     Dates: start: 20050329
  6. KEVATRIL [Concomitant]
     Dates: start: 20050308, end: 20050503
  7. VERGENTAN [Concomitant]
     Dates: start: 20050304, end: 20050512
  8. PARACODIN BITARTRATE TAB [Concomitant]
  9. NOVAMIN [Concomitant]
  10. XIMOVAN [Concomitant]
  11. THEOPHYLLINE [Concomitant]
  12. PREDNISONE TAB [Concomitant]
  13. VIANI [Concomitant]
  14. SILOMAT [Concomitant]
  15. FORADIL [Concomitant]
  16. AVELOX [Concomitant]
     Dates: start: 20050329, end: 20050414
  17. DIAZEPAM [Concomitant]
     Dates: start: 20050502
  18. FORTECORTIN [Concomitant]
     Dates: start: 20050304, end: 20050503

REACTIONS (1)
  - DIZZINESS [None]
